FAERS Safety Report 6250405-1 (Version None)
Quarter: 2009Q2

REPORT INFORMATION
  Report Type: 
  Country: None (occurrence: None)
  Receive Date: 20090630
  Receipt Date: 20090626
  Transmission Date: 20091009
  Serious: Yes (Other)
  Sender: FDA-Public Use
  Company Number: IT-BRISTOL-MYERS SQUIBB COMPANY-14674287

PATIENT
  Age: 50 Year
  Sex: Male

DRUGS (1)
  1. HYDROXYCARBAMIDE [Suspect]

REACTIONS (1)
  - INFECTED SKIN ULCER [None]
